FAERS Safety Report 8045231-7 (Version None)
Quarter: 2012Q1

REPORT INFORMATION
  Report Type: 
  Country: None (occurrence: None)
  Receive Date: 20120113
  Receipt Date: 20120110
  Transmission Date: 20120608
  Serious: Yes (Other)
  Sender: FDA-Public Use
  Company Number: US-AMGEN-USASP2011069544

PATIENT
  Age: 73 Year
  Sex: Female
  Weight: 88.889 kg

DRUGS (5)
  1. RITUXAN [Concomitant]
  2. ENBREL [Suspect]
     Indication: RHEUMATOID ARTHRITIS
     Dosage: 50 MG, QWK
     Dates: start: 20111101
  3. ENBREL [Suspect]
     Dosage: UNK
     Dates: end: 20080101
  4. ACTEMRA [Concomitant]
  5. ORENCIA [Concomitant]

REACTIONS (4)
  - INJECTION SITE PAIN [None]
  - RHEUMATOID ARTHRITIS [None]
  - HYPOAESTHESIA [None]
  - DRUG INEFFECTIVE [None]
